FAERS Safety Report 7744786-7 (Version None)
Quarter: 2011Q3

REPORT INFORMATION
  Report Type: 
  Country: None (occurrence: None)
  Receive Date: 20110912
  Receipt Date: 20110912
  Transmission Date: 20111222
  Serious: Yes (Life-Threatening, Hospitalization)
  Sender: FDA-Public Use
  Company Number: None

PATIENT
  Age: 48 Year
  Sex: Female
  Weight: 56.699 kg

DRUGS (1)
  1. SUDAFED 12 HOUR [Suspect]
     Indication: SINUS CONGESTION
     Dosage: 1 TABLET -120 MG-
     Route: 048
     Dates: start: 20110601, end: 20110825

REACTIONS (2)
  - HAEMORRHAGIC STROKE [None]
  - MYOCARDIAL INFARCTION [None]
